FAERS Safety Report 6368400-0 (Version None)
Quarter: 2009Q3

REPORT INFORMATION
  Report Type: 
  Country: None (occurrence: None)
  Receive Date: 20090903
  Receipt Date: 20090824
  Transmission Date: 20100115
  Serious: Yes (Hospitalization)
  Sender: FDA-Public Use
  Company Number: 20090824CINRY1096

PATIENT
  Age: 57 Year
  Sex: Male

DRUGS (2)
  1. CINRYZE [Suspect]
     Indication: HEREDITARY ANGIOEDEMA
     Dosage: AS REQUIRED
  2. CINRYZE [Suspect]
     Indication: PROPHYLAXIS
     Dosage: AS REQUIRED

REACTIONS (3)
  - HEREDITARY ANGIOEDEMA [None]
  - INAPPROPRIATE SCHEDULE OF DRUG ADMINISTRATION [None]
  - POST PROCEDURAL HAEMORRHAGE [None]
